FAERS Safety Report 12548343 (Version 1)
Quarter: 2016Q3

REPORT INFORMATION
  Report Type: Spontaneous
  Country: IN (occurrence: None)
  Receive Date: 20160711
  Receipt Date: 20160711
  Transmission Date: 20161109
  Serious: Yes (Other)
  Sender: FDA-Public Use
  Company Number: None

PATIENT
  Age: 20 Year
  Sex: Female

DRUGS (1)
  1. ZANOCIN (OFLOXACIN) RANBAXY [Suspect]
     Active Substance: OFLOXACIN
     Route: 048
     Dates: start: 20120923, end: 20120929

REACTIONS (2)
  - Photosensitivity reaction [None]
  - Post inflammatory pigmentation change [None]

NARRATIVE: CASE EVENT DATE: 20121001
